FAERS Safety Report 23077169 (Version 2)
Quarter: 2023Q4

REPORT INFORMATION
  Report Type: Spontaneous
  Country: JP (occurrence: JP)
  Receive Date: 20231018
  Receipt Date: 20231220
  Transmission Date: 20240109
  Serious: Yes (Other)
  Sender: FDA-Public Use
  Company Number: JP-002147023-NVSJ2023JP014997

PATIENT
  Age: 52 Year
  Sex: Male

DRUGS (6)
  1. IMATINIB [Suspect]
     Active Substance: IMATINIB
     Indication: Chronic myeloid leukaemia
     Dosage: 400 MG
     Route: 048
     Dates: start: 20200827, end: 202011
  2. SCEMBLIX [Suspect]
     Active Substance: ASCIMINIB HYDROCHLORIDE
     Indication: Chronic myeloid leukaemia
     Dosage: 80 MG
     Route: 048
     Dates: start: 202209, end: 202212
  3. SCEMBLIX [Suspect]
     Active Substance: ASCIMINIB HYDROCHLORIDE
     Dosage: 80 MG
     Route: 048
     Dates: start: 202301
  4. DASATINIB [Suspect]
     Active Substance: DASATINIB
     Indication: Chronic myeloid leukaemia
     Dosage: 20 MG
     Route: 065
     Dates: start: 202101
  5. DASATINIB [Suspect]
     Active Substance: DASATINIB
     Dosage: 40 MG
     Route: 065
     Dates: start: 202102, end: 202103
  6. DASATINIB [Suspect]
     Active Substance: DASATINIB
     Dosage: 50 MG
     Route: 065
     Dates: start: 202103, end: 20220112

REACTIONS (2)
  - Interstitial lung disease [Recovering/Resolving]
  - Hypersensitivity pneumonitis [Unknown]

NARRATIVE: CASE EVENT DATE: 20201101
